FAERS Safety Report 18081147 (Version 1)
Quarter: 2020Q3

REPORT INFORMATION
  Report Type: Spontaneous
  Country: CN (occurrence: CN)
  Receive Date: 20200728
  Receipt Date: 20200728
  Transmission Date: 20201103
  Serious: Yes (Other)
  Sender: FDA-Public Use
  Company Number: CN-ROCHE-2646949

PATIENT
  Age: 39 Year
  Sex: Female

DRUGS (27)
  1. HERCEPTIN [Suspect]
     Active Substance: TRASTUZUMAB
     Route: 065
     Dates: start: 20191210
  2. XELODA [Suspect]
     Active Substance: CAPECITABINE
     Indication: INVASIVE DUCTAL BREAST CARCINOMA
     Dosage: HX REGIMEN, DAY 1?14
     Route: 065
     Dates: start: 201505
  3. XELODA [Suspect]
     Active Substance: CAPECITABINE
     Dosage: DAY1?14
     Route: 065
     Dates: start: 201604
  4. XELODA [Suspect]
     Active Substance: CAPECITABINE
     Route: 065
     Dates: start: 201903
  5. VINORELBINE [Concomitant]
     Active Substance: VINORELBINE TARTRATE
     Indication: INVASIVE DUCTAL BREAST CARCINOMA
     Route: 048
     Dates: start: 201812
  6. GOSERELIN [Concomitant]
     Active Substance: GOSERELIN
     Dates: start: 20190801
  7. HERCEPTIN [Suspect]
     Active Substance: TRASTUZUMAB
     Indication: INVASIVE DUCTAL BREAST CARCINOMA
     Dosage: HX REGIMEN
     Route: 065
     Dates: start: 201505
  8. HERCEPTIN [Suspect]
     Active Substance: TRASTUZUMAB
     Route: 065
     Dates: start: 201706
  9. HERCEPTIN [Suspect]
     Active Substance: TRASTUZUMAB
     Route: 065
     Dates: start: 201807
  10. XELODA [Suspect]
     Active Substance: CAPECITABINE
     Route: 065
  11. GOSERELIN [Concomitant]
     Active Substance: GOSERELIN
     Dates: start: 201803
  12. PYROTINIB [Concomitant]
     Active Substance: PYROTINIB
     Indication: INVASIVE DUCTAL BREAST CARCINOMA
     Route: 048
     Dates: start: 201812
  13. LAPATINIB [Concomitant]
     Active Substance: LAPATINIB
     Indication: INVASIVE DUCTAL BREAST CARCINOMA
     Dates: start: 201903
  14. FULVESTRANT. [Concomitant]
     Active Substance: FULVESTRANT
     Dates: start: 20191210
  15. HERCEPTIN [Suspect]
     Active Substance: TRASTUZUMAB
     Route: 065
     Dates: start: 201803
  16. HERCEPTIN [Suspect]
     Active Substance: TRASTUZUMAB
     Dosage: HN REGIMEN
     Route: 065
     Dates: start: 201901
  17. ANASTROZOLE. [Concomitant]
     Active Substance: ANASTROZOLE
     Indication: INVASIVE DUCTAL BREAST CARCINOMA
     Dates: start: 201706
  18. EXEMESTANE. [Concomitant]
     Active Substance: EXEMESTANE
     Indication: INVASIVE DUCTAL BREAST CARCINOMA
     Dates: start: 201803
  19. EVEROLIMUS. [Concomitant]
     Active Substance: EVEROLIMUS
     Indication: INVASIVE DUCTAL BREAST CARCINOMA
     Dates: start: 201803
  20. VINORELBINE [Concomitant]
     Active Substance: VINORELBINE TARTRATE
     Dosage: HN REGIMEN
     Dates: start: 201901
  21. GOSERELIN [Concomitant]
     Active Substance: GOSERELIN
     Dates: start: 20191210
  22. XELODA [Suspect]
     Active Substance: CAPECITABINE
     Dosage: DAY1?14
     Route: 065
  23. GOSERELIN [Concomitant]
     Active Substance: GOSERELIN
     Indication: INVASIVE DUCTAL BREAST CARCINOMA
     Dates: start: 201706
  24. PACLITAXEL LIPOSOME [Concomitant]
     Active Substance: PACLITAXEL
     Indication: INVASIVE DUCTAL BREAST CARCINOMA
     Dates: start: 201807
  25. HERCEPTIN [Suspect]
     Active Substance: TRASTUZUMAB
     Route: 065
     Dates: start: 20190801
  26. FULVESTRANT. [Concomitant]
     Active Substance: FULVESTRANT
     Indication: INVASIVE DUCTAL BREAST CARCINOMA
     Dates: start: 20190801
  27. PALBOCICLIB [Concomitant]
     Active Substance: PALBOCICLIB
     Indication: INVASIVE DUCTAL BREAST CARCINOMA
     Dates: start: 20191210

REACTIONS (2)
  - Palmar-plantar erythrodysaesthesia syndrome [Unknown]
  - Vomiting [Unknown]
